FAERS Safety Report 9255699 (Version 2)
Quarter: 2013Q2

REPORT INFORMATION
  Report Type: Spontaneous
  Country: US (occurrence: US)
  Receive Date: 20130425
  Receipt Date: 20130503
  Transmission Date: 20140414
  Serious: Yes (Hospitalization)
  Sender: FDA-Public Use
  Company Number: US-VERTEX PHARMACEUTICALS INC.-2013-005335

PATIENT
  Age: 61 Year
  Sex: Female
  Weight: 93 kg

DRUGS (3)
  1. INCIVEK [Suspect]
     Indication: HEPATITIS C
     Dosage: 750 MG, TID
     Route: 048
     Dates: start: 20130303, end: 20130429
  2. RIBAVIRIN [Suspect]
     Indication: HEPATITIS C
     Dosage: 600 MG, BID
     Route: 048
     Dates: start: 20130303, end: 20130429
  3. PEGASYS [Suspect]
     Indication: HEPATITIS C
     Dosage: 180 ?G, QW
     Route: 058
     Dates: start: 20130303, end: 20130429

REACTIONS (8)
  - Encephalopathy [Unknown]
  - Ammonia increased [Unknown]
  - Anaemia [Unknown]
  - Disorientation [Recovered/Resolved]
  - Dysarthria [Unknown]
  - Somnolence [Unknown]
  - Abnormal behaviour [Unknown]
  - Diarrhoea [Not Recovered/Not Resolved]
